FAERS Safety Report 5358661-9 (Version None)
Quarter: 2007Q2

REPORT INFORMATION
  Report Type: 
  Country: None (occurrence: None)
  Receive Date: 20070615
  Receipt Date: 20070611
  Transmission Date: 20071010
  Serious: Yes (Hospitalization)
  Sender: FDA-Public Use
  Company Number: US-BRISTOL-MYERS SQUIBB COMPANY-13810361

PATIENT
  Age: 66 Year
  Sex: Female

DRUGS (15)
  1. DASATINIB [Suspect]
     Indication: COLORECTAL CANCER METASTATIC
     Route: 048
     Dates: start: 20070525, end: 20070525
  2. CETUXIMAB [Suspect]
     Indication: COLORECTAL CANCER METASTATIC
     Route: 042
     Dates: start: 20070525, end: 20070525
  3. OXALIPLATIN [Suspect]
     Indication: COLORECTAL CANCER METASTATIC
     Route: 042
     Dates: start: 20070525, end: 20070525
  4. FLUOROURACIL [Suspect]
     Indication: COLORECTAL CANCER METASTATIC
     Route: 040
     Dates: start: 20070525, end: 20070525
  5. LEUCOVORIN CALCIUM [Suspect]
     Indication: COLORECTAL CANCER METASTATIC
     Route: 042
     Dates: start: 20070525, end: 20070525
  6. ALEVE [Concomitant]
  7. AMBIEN [Concomitant]
  8. DARVON [Concomitant]
     Indication: PAIN
     Route: 048
  9. FISH OIL [Concomitant]
     Route: 048
  10. LISINOPRIL [Concomitant]
  11. M.V.I. [Concomitant]
  12. REGLAN [Concomitant]
  13. SENOKOT [Concomitant]
  14. ASCORBIC ACID [Concomitant]
  15. VITAMIN A [Concomitant]

REACTIONS (5)
  - ATRIAL FIBRILLATION [None]
  - CHILLS [None]
  - HYPOXIA [None]
  - PNEUMONIA [None]
  - PYREXIA [None]
